FAERS Safety Report 25949796 (Version 2)
Quarter: 2025Q4

REPORT INFORMATION
  Report Type: Report from Study
  Country: US (occurrence: US)
  Receive Date: 20251022
  Receipt Date: 20251215
  Transmission Date: 20260117
  Serious: Yes (Hospitalization, Other)
  Sender: AIMMUNE
  Company Number: US-ZENPEP LLC-2025AIMT01047

PATIENT

DRUGS (22)
  1. ZENPEP [Suspect]
     Active Substance: PANCRELIPASE AMYLASE\PANCRELIPASE LIPASE\PANCRELIPASE PROTEASE
     Indication: Pancreatitis chronic
     Dosage: 40,000 UPS 100 CT CAPSULES, TWICE A DAY WITH MEALS (BEFORE LUNCH AND DINNER)
     Route: 048
  2. ZENPEP [Suspect]
     Active Substance: PANCRELIPASE AMYLASE\PANCRELIPASE LIPASE\PANCRELIPASE PROTEASE
     Dosage: 40,000 UPS CAPSULE, ONCE, WITH MEALN (BEFORE LUNCH OR DINNER) LAST DOSE PRIOR EVENTS
     Route: 048
  3. FLINTSTONES MULTIVITAMINS WITH IRON [Concomitant]
     Indication: Anticoagulant therapy
     Dosage: 1X/DAY
  4. XARELTO [Concomitant]
     Active Substance: RIVAROXABAN
     Indication: Product used for unknown indication
     Dosage: 15 MG TAB, 1X/DAY, IN THE EVENING
     Route: 048
  5. PANTOPRAZOLE [Concomitant]
     Active Substance: PANTOPRAZOLE
     Indication: Product used for unknown indication
     Dosage: 40 MG DELAYED RELEASE TABLET, 1X/DAY
     Route: 048
  6. TYLENOL EXTRA STRENGTH [Concomitant]
     Active Substance: ACETAMINOPHEN
     Indication: Product used for unknown indication
     Dosage: ONE 500 MG TABLET ON 6 H INTERVAL, AS NEEDED
  7. TYLENOL EXTRA STRENGTH [Concomitant]
     Active Substance: ACETAMINOPHEN
     Dosage: 650 MG EVERY 6 HOURS
  8. ALPRAZOLAM [Concomitant]
     Active Substance: ALPRAZOLAM
     Indication: Product used for unknown indication
     Dosage: 0.25 MG TAB, 3X/DAY, AS NEEDED
     Route: 048
  9. CALCITRIOL [Concomitant]
     Active Substance: CALCITRIOL
     Indication: Product used for unknown indication
     Dosage: 0.25 MCG CAPSULE, 1X/DAY
     Route: 048
  10. DAPAGLIFLOZIN [Concomitant]
     Active Substance: DAPAGLIFLOZIN
     Indication: Product used for unknown indication
     Dosage: 10 MG TABLET
     Route: 048
  11. NOVOLOG [Concomitant]
     Active Substance: INSULIN ASPART
     Indication: Product used for unknown indication
     Dosage: 10 UNITS 3X/DAY
     Route: 058
  12. TOUJEO [Concomitant]
     Active Substance: INSULIN GLARGINE
     Indication: Product used for unknown indication
     Dosage: 12 UNITS, 1X/DAY, AT BEDTIME
     Route: 058
  13. TOUJEO [Concomitant]
     Active Substance: INSULIN GLARGINE
     Dosage: 40 UNITS 1X/DAY
     Route: 058
  14. LOSARTAN [Concomitant]
     Active Substance: LOSARTAN
     Indication: Product used for unknown indication
     Dosage: 25 MG TAB, 1X/DAY
     Route: 048
  15. METOPROLOL [Concomitant]
     Active Substance: METOPROLOL
     Indication: Product used for unknown indication
     Dosage: 25 MG EXTENDED RELEASE TAB, 1X/DAY
     Route: 048
  16. ROSUVASTATIN [Concomitant]
     Active Substance: ROSUVASTATIN
     Indication: Product used for unknown indication
     Dosage: 40 MG, 1 TAB/DAY
     Route: 048
  17. SERTRALINE [Concomitant]
     Active Substance: SERTRALINE HYDROCHLORIDE
     Indication: Product used for unknown indication
     Dosage: 50 MG TABLET
     Route: 048
  18. TESTOSTERONE [Concomitant]
     Active Substance: TESTOSTERONE
     Indication: Product used for unknown indication
     Dosage: UNK
     Route: 030
  19. XANAX [Concomitant]
     Active Substance: ALPRAZOLAM
     Indication: Product used for unknown indication
     Dosage: 0.25 MG, 3X/DAY
  20. ATORVASTATIN CALCIUM [Concomitant]
     Active Substance: ATORVASTATIN CALCIUM
     Indication: Product used for unknown indication
     Dosage: 40 MG, 1X/DAY, AT BEDTME
     Route: 048
  21. ASPIRIN [Concomitant]
     Active Substance: ASPIRIN
     Indication: Product used for unknown indication
     Dosage: 81 MG 1X/DAY
     Route: 048
  22. LISINOPRIL [Concomitant]
     Active Substance: LISINOPRIL
     Indication: Product used for unknown indication
     Dosage: 5 MG, 1X/DAY
     Route: 048

REACTIONS (23)
  - Haemorrhagic transformation stroke [Unknown]
  - Adenocarcinoma pancreas [Unknown]
  - Faecaloma [Unknown]
  - Pneumonia [Recovered/Resolved with Sequelae]
  - Hemianopia homonymous [Unknown]
  - Aortic stenosis [Unknown]
  - Silent myocardial infarction [Unknown]
  - Myocardial infarction [Unknown]
  - Gastrointestinal arteriovenous malformation [Unknown]
  - Biliary hamartoma [Unknown]
  - Haemorrhoids [Unknown]
  - Gastritis [Recovered/Resolved]
  - Iron deficiency anaemia [Unknown]
  - Headache [Unknown]
  - Malnutrition [Recovered/Resolved]
  - Hepatic steatosis [Unknown]
  - Pleural effusion [Unknown]
  - Gastrooesophageal reflux disease [Recovered/Resolved]
  - Product use issue [Unknown]
  - Balance disorder [Unknown]
  - Diastolic dysfunction [Unknown]
  - Aortic valve calcification [Unknown]
  - Diarrhoea [Recovered/Resolved]

NARRATIVE: CASE EVENT DATE: 20201103
